FAERS Safety Report 6219497-X (Version None)
Quarter: 2009Q2

REPORT INFORMATION
  Report Type: 
  Country: None (occurrence: None)
  Receive Date: 20090609
  Receipt Date: 20090529
  Transmission Date: 20091009
  Serious: Yes (Other)
  Sender: FDA-Public Use
  Company Number: US-JNJFOC-20090600087

PATIENT
  Age: 21 Year
  Sex: Male

DRUGS (5)
  1. INTELENCE [Suspect]
     Indication: PROPHYLAXIS AGAINST HIV INFECTION
     Route: 048
  2. PREZISTA [Suspect]
     Indication: PROPHYLAXIS AGAINST HIV INFECTION
     Route: 048
  3. RITONAVIR [Concomitant]
     Indication: PROPHYLAXIS AGAINST HIV INFECTION
  4. RALTEGRAVIR [Concomitant]
     Indication: PROPHYLAXIS AGAINST HIV INFECTION
  5. TRUVADA [Concomitant]
     Indication: PROPHYLAXIS AGAINST HIV INFECTION

REACTIONS (4)
  - ABDOMINAL DISCOMFORT [None]
  - NAUSEA [None]
  - OFF LABEL USE [None]
  - RASH [None]
